FAERS Safety Report 9695919 (Version 5)
Quarter: 2018Q1

REPORT INFORMATION
  Report Type: Spontaneous
  Country: US (occurrence: US)
  Receive Date: 20131119
  Receipt Date: 20180112
  Transmission Date: 20180509
  Serious: Yes (Other)
  Sender: FDA-Public Use
  Company Number: US-BAYER-2013-127700

PATIENT
  Age: 30 Year
  Sex: Female

DRUGS (7)
  1. CLONAZEPAM. [Concomitant]
     Active Substance: CLONAZEPAM
     Indication: ANXIETY
  2. ESSURE [Suspect]
     Active Substance: DEVICE
     Indication: FEMALE STERILISATION
     Dosage: UNK
     Dates: start: 20110611, end: 20131029
  3. MIRENA [Suspect]
     Active Substance: LEVONORGESTREL
     Indication: CONTRACEPTION
     Dosage: 20 MCG/24HR, CONT
     Route: 015
     Dates: start: 201106
  4. WELLBUTRIN [Concomitant]
     Active Substance: BUPROPION HYDROCHLORIDE
     Indication: DEPRESSION
  5. TOPIRAMATE. [Concomitant]
     Active Substance: TOPIRAMATE
     Indication: MIGRAINE
  6. MACROBID [Concomitant]
     Active Substance: NITROFURANTOIN\NITROFURANTOIN MONOHYDRATE
     Indication: URINARY TRACT INFECTION
  7. MIRENA [Suspect]
     Active Substance: LEVONORGESTREL
     Dosage: UNK

REACTIONS (35)
  - Pelvic pain [Recovering/Resolving]
  - Genital haemorrhage [Unknown]
  - Pain [Recovering/Resolving]
  - Fatigue [Recovering/Resolving]
  - Headache [Recovering/Resolving]
  - Rash macular [Recovered/Resolved]
  - Allergy to metals [Recovering/Resolving]
  - Urine odour abnormal [Recovered/Resolved]
  - Food allergy [Recovering/Resolving]
  - Depression [Not Recovered/Not Resolved]
  - Vaginal discharge [Not Recovered/Not Resolved]
  - Anxiety [Unknown]
  - Ovarian cyst [Unknown]
  - Impaired healing [Recovering/Resolving]
  - Urinary tract infection [Recovered/Resolved]
  - Arthralgia [Recovering/Resolving]
  - Immune system disorder [Recovering/Resolving]
  - Arthritis [Recovering/Resolving]
  - Joint injury [Recovering/Resolving]
  - Drug hypersensitivity [Unknown]
  - Fibromyalgia [Unknown]
  - Back pain [Recovered/Resolved]
  - Micturition urgency [Recovered/Resolved]
  - Urine odour abnormal [Unknown]
  - Breast pain [Not Recovered/Not Resolved]
  - Dermatitis contact [Recovering/Resolving]
  - Dysgeusia [Not Recovered/Not Resolved]
  - Abdominal pain lower [Not Recovered/Not Resolved]
  - Oligomenorrhoea [Unknown]
  - Migraine [Not Recovered/Not Resolved]
  - Oral pruritus [Recovering/Resolving]
  - Night sweats [Unknown]
  - Pruritus [Recovering/Resolving]
  - Fear of disease [Unknown]
  - Pollakiuria [Not Recovered/Not Resolved]

NARRATIVE: CASE EVENT DATE: 2011
